FAERS Safety Report 9685873 (Version 1)
Quarter: 2013Q4

REPORT INFORMATION
  Report Type: Spontaneous
  Country: US (occurrence: US)
  Receive Date: 20131113
  Receipt Date: 20131113
  Transmission Date: 20140711
  Serious: Yes (Other)
  Sender: FDA-Public Use
  Company Number: US-RB-059596-13

PATIENT
  Age: 64 Year
  Sex: Male

DRUGS (1)
  1. MUCINEX UNSPECIFIED [Suspect]
     Indication: RESPIRATORY TRACT CONGESTION
     Route: 048
     Dates: start: 20131101

REACTIONS (1)
  - Blood urine present [Not Recovered/Not Resolved]
